FAERS Safety Report 5486990-7 (Version None)
Quarter: 2007Q4

REPORT INFORMATION
  Report Type: 
  Country: None (occurrence: None)
  Receive Date: 20071016
  Receipt Date: 20071002
  Transmission Date: 20080405
  Serious: Yes (Hospitalization)
  Sender: FDA-Public Use
  Company Number: JP-ELI_LILLY_AND_COMPANY-JP200710002469

PATIENT
  Sex: Female
  Weight: 48 kg

DRUGS (11)
  1. RALOXIFENE HYDROCHLORIDE [Suspect]
     Indication: OSTEOPOROSIS POSTMENOPAUSAL
     Dosage: 60 MG, DAILY (1/D)
     Route: 048
     Dates: start: 20041207
  2. ZOLPIDEM [Concomitant]
     Indication: INSOMNIA
     Dosage: 5 MG, DAILY (1/D)
     Route: 048
     Dates: start: 20040914
  3. ALDACTONE [Concomitant]
     Indication: HYPERTENSION
     Dosage: 25 MG, DAILY (1/D)
     Route: 048
     Dates: start: 20041102
  4. LANSOPRAZOLE [Concomitant]
     Indication: REFLUX OESOPHAGITIS
     Dosage: 30 MG, DAILY (1/D)
     Route: 048
     Dates: start: 20041207
  5. TOLBUTAMIDE [Concomitant]
     Indication: DIABETES MELLITUS
     Dosage: 500 MG, DAILY (1/D)
     Route: 048
  6. GANATON [Concomitant]
     Indication: GASTRITIS ATROPHIC
     Dosage: 150 MG, DAILY (1/D)
     Route: 048
  7. ONEALFA [Concomitant]
     Indication: OSTEOPOROSIS POSTMENOPAUSAL
     Dosage: 0.5 UG, DAILY (1/D)
     Route: 048
  8. IBUPROFEN [Concomitant]
     Indication: ARTHRALGIA
     Dosage: 400 MG, DAILY (1/D)
     Route: 048
  9. PROCYLIN [Concomitant]
     Indication: ARTERIOSCLEROSIS OBLITERANS
     Dosage: 60 MG, DAILY (1/D)
     Route: 048
  10. TOKISYAKUYAKUSAN [Concomitant]
     Indication: ANAEMIA
     Dosage: 5 G, DAILY (1/D)
     Route: 048
  11. GOSHAJINKIGAN [Concomitant]
     Indication: HYPOAESTHESIA
     Dosage: 5 G, DAILY (1/D)
     Route: 048
     Dates: start: 20050812

REACTIONS (3)
  - RIB FRACTURE [None]
  - SPINAL COMPRESSION FRACTURE [None]
  - SPINAL FRACTURE [None]
